FAERS Safety Report 13339945 (Version 2)
Quarter: 2017Q4

REPORT INFORMATION
  Report Type: Spontaneous
  Country: IT (occurrence: IT)
  Receive Date: 20170316
  Receipt Date: 20171016
  Transmission Date: 20180320
  Serious: Yes (Hospitalization)
  Sender: FDA-Public Use
  Company Number: IT-ROCHE-1904616

PATIENT
  Age: 60 Year
  Sex: Male
  Weight: 64 kg

DRUGS (8)
  1. RANITIDINE. [Concomitant]
     Active Substance: RANITIDINE
     Indication: PREMEDICATION
     Dosage: 50 MG / 5 ML 5 X 5 ML VIALS
     Route: 042
     Dates: start: 20170306, end: 20170306
  2. URBASON [Concomitant]
     Active Substance: METHYLPREDNISOLONE
     Indication: PREMEDICATION
     Dosage: 40 MG/ML 1 VIAL OF POWDER + 1 VIAL OF SOLVENT 1 ML
     Route: 042
     Dates: start: 20170306, end: 20170306
  3. TACHIPIRINA [Concomitant]
     Active Substance: ACETAMINOPHEN
     Dosage: 1000 MG TABLETS 16 TABLETS
     Route: 048
     Dates: start: 20170306, end: 20170306
  4. BACTRIM [Concomitant]
     Active Substance: SULFAMETHOXAZOLE\TRIMETHOPRIM
     Indication: PNEUMOCYSTIS JIROVECII PNEUMONIA
     Dosage: 160 MG + 800 MG TABLETS 16 TABLETS
     Route: 048
     Dates: start: 20170206, end: 20170307
  5. DELTACORTENE [Concomitant]
     Active Substance: PREDNISONE
     Dosage: ^25 MG TABLETS^ 10 TABLETS
     Route: 048
     Dates: start: 20170206, end: 20170307
  6. MABTHERA [Suspect]
     Active Substance: RITUXIMAB
     Indication: EOSINOPHILIC GRANULOMATOSIS WITH POLYANGIITIS
     Dosage: 1 VIAL 500 MG 50 ML
     Route: 042
     Dates: start: 20170306, end: 20170306
  7. TRIMETON [Concomitant]
     Active Substance: CHLORPHENIRAMINE MALEATE
     Indication: PREMEDICATION
     Dosage: 10 MG/ML 5 X 1 ML VIALS
     Route: 042
     Dates: start: 20170306, end: 20170306
  8. PANTORC [Concomitant]
     Active Substance: PANTOPRAZOLE SODIUM
     Dosage: 28 GASTRO-RESISTANT 20 MG TABLETS IN BLISTER PACK
     Route: 048
     Dates: start: 20170206, end: 20170307

REACTIONS (3)
  - Urticaria [Recovered/Resolved]
  - Erythema [Recovered/Resolved]
  - Tongue oedema [Recovered/Resolved]

NARRATIVE: CASE EVENT DATE: 20170306
